FAERS Safety Report 26189442 (Version 1)
Quarter: 2025Q4

REPORT INFORMATION
  Report Type: Spontaneous
  Country: CN (occurrence: CN)
  Receive Date: 20251223
  Receipt Date: 20251223
  Transmission Date: 20260118
  Serious: Yes (Other)
  Sender: SANDOZ
  Company Number: CN-SANDOZ-SDZ2025CN095266

PATIENT
  Age: 62 Year
  Sex: Female

DRUGS (4)
  1. VORICONAZOLE [Suspect]
     Active Substance: VORICONAZOLE
     Indication: Antifungal treatment
     Dosage: 200 MG, BID
     Dates: start: 20251111, end: 20251114
  2. VORICONAZOLE [Suspect]
     Active Substance: VORICONAZOLE
     Indication: Chemotherapy
     Dosage: 100 MG, BID
     Dates: start: 20251114, end: 20251115
  3. MEROPENEM [Concomitant]
     Active Substance: MEROPENEM
     Indication: Bacterial infection
     Dosage: 1 G, TID
     Dates: start: 20251110, end: 20251120
  4. MEROPENEM [Concomitant]
     Active Substance: MEROPENEM
     Indication: Infection

REACTIONS (7)
  - Hyperpyrexia [Recovering/Resolving]
  - Hallucination, visual [Recovered/Resolved]
  - Temperature intolerance [Recovering/Resolving]
  - Mental disorder [Recovering/Resolving]
  - Disorganised speech [Recovering/Resolving]
  - Bacterial infection [Recovering/Resolving]
  - Headache [Recovering/Resolving]

NARRATIVE: CASE EVENT DATE: 20251113
